FAERS Safety Report 11502511 (Version 3)
Quarter: 2015Q4

REPORT INFORMATION
  Report Type: Report from Study
  Country: PT (occurrence: PT)
  Receive Date: 20150914
  Receipt Date: 20151207
  Transmission Date: 20160304
  Serious: Yes (Hospitalization)
  Sender: FDA-Public Use
  Company Number: PT-ABBVIE-15K-130-1462112-00

PATIENT
  Age: 50 Year
  Sex: Male

DRUGS (4)
  1. HUMIRA [Suspect]
     Active Substance: ADALIMUMAB
     Indication: CROHN^S DISEASE
     Route: 065
     Dates: start: 20140124
  2. UNILAN [Concomitant]
     Indication: DEPRESSION
     Route: 048
  3. ASACOL [Concomitant]
     Active Substance: MESALAMINE
     Indication: CROHN^S DISEASE
     Route: 054
     Dates: start: 201509
  4. LYRICA [Concomitant]
     Active Substance: PREGABALIN
     Indication: ANXIETY
     Route: 048

REACTIONS (4)
  - Anal haemorrhage [Recovered/Resolved]
  - Haematochezia [Recovered/Resolved]
  - Anaemia [Not Recovered/Not Resolved]
  - Anal fistula [Not Recovered/Not Resolved]

NARRATIVE: CASE EVENT DATE: 201505
